FAERS Safety Report 20098028 (Version 3)
Quarter: 2021Q4

REPORT INFORMATION
  Report Type: Report from Study
  Country: US (occurrence: US)
  Receive Date: 20211122
  Receipt Date: 20211207
  Transmission Date: 20220303
  Serious: Yes (Hospitalization, Other)
  Sender: FDA-Public Use
  Company Number: US-EXELIXIS-XL18421046299

PATIENT

DRUGS (16)
  1. CABOZANTINIB [Suspect]
     Active Substance: CABOZANTINIB
     Indication: Sarcoma uterus
     Dosage: 40 MG, QD
     Route: 048
     Dates: start: 20211102, end: 20211111
  2. CABOZANTINIB [Suspect]
     Active Substance: CABOZANTINIB
     Indication: Uterine leiomyosarcoma
     Dosage: 20 MG, QD
     Route: 048
     Dates: start: 20211122, end: 20211127
  3. IPILIMUMAB [Suspect]
     Active Substance: IPILIMUMAB
     Indication: Sarcoma uterus
     Dosage: 1 MG/KG, Q3WEEKS
     Route: 042
     Dates: start: 20211102
  4. IPILIMUMAB [Suspect]
     Active Substance: IPILIMUMAB
     Indication: Uterine leiomyosarcoma
  5. NIVOLUMAB [Suspect]
     Active Substance: NIVOLUMAB
     Indication: Sarcoma uterus
     Dosage: 3 MG/KG, Q3WEEKS
     Route: 042
     Dates: start: 20211102
  6. NIVOLUMAB [Suspect]
     Active Substance: NIVOLUMAB
     Indication: Uterine leiomyosarcoma
  7. ACETAMINOPHEN [Concomitant]
     Active Substance: ACETAMINOPHEN
  8. AMLODIPINE [Concomitant]
     Active Substance: AMLODIPINE BESYLATE
  9. Glucosamine + chondroitin [Concomitant]
  10. LIRAGLUTIDE [Concomitant]
     Active Substance: LIRAGLUTIDE
  11. LORATADINE [Concomitant]
     Active Substance: LORATADINE
  12. MELOXICAM [Concomitant]
     Active Substance: MELOXICAM
  13. METFORMIN [Concomitant]
     Active Substance: METFORMIN HYDROCHLORIDE
  14. METOPROLOL SUCCINATE [Concomitant]
     Active Substance: METOPROLOL SUCCINATE
  15. OMEPRAZOLE [Concomitant]
     Active Substance: OMEPRAZOLE
  16. VALSARTAN [Concomitant]
     Active Substance: VALSARTAN

REACTIONS (4)
  - Encephalopathy [Recovering/Resolving]
  - Hypotension [Recovering/Resolving]
  - Fatigue [Recovering/Resolving]
  - COVID-19 pneumonia [Unknown]

NARRATIVE: CASE EVENT DATE: 20211112
